FAERS Safety Report 4876004-1 (Version None)
Quarter: 2005Q4

REPORT INFORMATION
  Report Type: 
  Country: None (occurrence: None)
  Receive Date: 20051206
  Receipt Date: 20051027
  Transmission Date: 20060501
  Serious: No
  Sender: FDA-Public Use
  Company Number: USA0510112080

PATIENT
  Age: 55 Year
  Sex: Female

DRUGS (3)
  1. CYMBALTA [Suspect]
     Indication: PANIC DISORDER
     Dosage: 30 MG
     Dates: start: 20051023, end: 20051024
  2. TRANXENE [Concomitant]
  3. WELLBUTRIN [Concomitant]

REACTIONS (9)
  - ANXIETY [None]
  - BALANCE DISORDER [None]
  - DIZZINESS [None]
  - ERUCTATION [None]
  - HEADACHE [None]
  - MIGRAINE [None]
  - NAUSEA [None]
  - NERVOUSNESS [None]
  - VISUAL DISTURBANCE [None]
